FAERS Safety Report 10221904 (Version 1)
Quarter: 2014Q2

REPORT INFORMATION
  Report Type: Spontaneous
  Country: US (occurrence: None)
  Receive Date: 20140605
  Receipt Date: 20140605
  Transmission Date: 20141212
  Serious: Yes (Hospitalization)
  Sender: FDA-Public Use
  Company Number: None

PATIENT
  Age: 4 Year
  Sex: Male
  Weight: 13.6 kg

DRUGS (7)
  1. CYCLOPHOSPHAMIDE [Suspect]
     Dates: end: 20140520
  2. CYTARABINE [Suspect]
     Dates: end: 20140521
  3. DOXORUBICIN HYDROCHLORIDE [Suspect]
     Dates: end: 20140517
  4. HYDROCORTISONE [Suspect]
     Dates: end: 20140521
  5. METHOTREXATE [Suspect]
     Dosage: 5000MG=HD MTX IV?INFUSION?LAST DATE= IT MTX ?INFUSION?LAST DATE= 5/21/2014
     Dates: end: 20140521
  6. PREDNISONE [Suspect]
     Dates: end: 20140524
  7. VINCRISTINE [Suspect]
     Dates: end: 20140516

REACTIONS (11)
  - Colitis [None]
  - Neutropenia [None]
  - Mucosal inflammation [None]
  - Respiratory depression [None]
  - Oxygen saturation abnormal [None]
  - Abdominal distension [None]
  - Blood culture positive [None]
  - Urine output decreased [None]
  - Blood pressure systolic increased [None]
  - Pleural effusion [None]
  - Electrolyte imbalance [None]
